FAERS Safety Report 10082463 (Version 1)
Quarter: 2014Q2

REPORT INFORMATION
  Report Type: Spontaneous
  Country: US (occurrence: US)
  Receive Date: 20140416
  Receipt Date: 20140416
  Transmission Date: 20141212
  Serious: Yes (Other)
  Sender: FDA-Public Use
  Company Number: US-ASTELLAS-2014US003707

PATIENT
  Age: 59 Year
  Sex: Female

DRUGS (1)
  1. MYRBETRIQ [Suspect]
     Indication: PRODUCT USED FOR UNKNOWN INDICATION
     Route: 048
     Dates: start: 20140327

REACTIONS (6)
  - Renal pain [Unknown]
  - Nasopharyngitis [Unknown]
  - Vision blurred [Unknown]
  - Headache [Unknown]
  - Back pain [Unknown]
  - Musculoskeletal pain [Unknown]
